FAERS Safety Report 21679484 (Version 1)
Quarter: 2022Q4

REPORT INFORMATION
  Report Type: Spontaneous
  Country: SE (occurrence: SE)
  Receive Date: 20221205
  Receipt Date: 20221205
  Transmission Date: 20230112
  Serious: Yes (Other)
  Sender: FDA-Public Use
  Company Number: None

PATIENT
  Age: 61 Year
  Sex: Male

DRUGS (18)
  1. KEYTRUDA [Suspect]
     Active Substance: PEMBROLIZUMAB
     Indication: Renal cancer metastatic
     Dosage: UNK
     Dates: start: 20220809
  2. INLYTA [Suspect]
     Active Substance: AXITINIB
     Indication: Renal cancer metastatic
     Dosage: ONE TWICE DAILY
     Dates: start: 20220622, end: 20220922
  3. PREDNISOLONE [Concomitant]
     Active Substance: PREDNISOLONE
     Dosage: ONE AT 8 A.M.
     Dates: start: 20220518
  4. OXYCODONE HYDROCHLORIDE [Concomitant]
     Active Substance: OXYCODONE HYDROCHLORIDE
     Dosage: TWO WHEN NEEDED
     Dates: start: 20220926
  5. BETAPRED [Concomitant]
     Active Substance: BETAMETHASONE SODIUM PHOSPHATE
     Dosage: UNK
     Dates: start: 20220930, end: 20221102
  6. MOVICOL [Concomitant]
     Active Substance: POLYETHYLENE GLYCOL 3350\POTASSIUM CHLORIDE\SODIUM BICARBONATE\SODIUM CHLORIDE
     Dosage: AS PRESCRIBED
     Dates: start: 20220503
  7. METHOTREXATE SODIUM [Concomitant]
     Active Substance: METHOTREXATE SODIUM
     Dosage: 7 ONCE A WEEK UNTIL FURTHER NOTICE
     Dates: start: 20201130
  8. CYANOCOBALAMIN [Concomitant]
     Active Substance: CYANOCOBALAMIN
     Dosage: ONCE DAILY UNTIL FURTHER NOTICE
     Dates: start: 20220616
  9. ENALAPRIL MALEATE [Concomitant]
     Active Substance: ENALAPRIL MALEATE
     Dosage: ONCE DAILY UNTIL FURTHER NOTICE
     Dates: start: 20210904
  10. LAKTULOS [Concomitant]
     Dosage: 10 TO 25 ONCE DAILY UNTIL FURTHER NOTICE
     Dates: start: 20220824
  11. FRAGMIN [Concomitant]
     Active Substance: DALTEPARIN SODIUM
     Dosage: ONE AT 6 P.M.
     Dates: start: 20220616
  12. SIMVASTATIN [Concomitant]
     Active Substance: SIMVASTATIN
     Dosage: ONE AT NIGHT UNTIL FURTHER NOTICE
     Dates: start: 20201130
  13. OLANZAPINE [Concomitant]
     Active Substance: OLANZAPINE
     Dosage: ONE AT 8 P.M. WHEN NEEDED UNTIL FURTHER NOTICE
     Dates: start: 20220928
  14. UREA [Concomitant]
     Active Substance: UREA
     Dosage: ONE WHEN NEEDED UNTIL FURTHER NOTICE
     Dates: start: 20220712
  15. FELODIPIN ACTAVIS [Concomitant]
     Dosage: ONCE DAILY UNTIL FURTHER NOTICE
     Dates: start: 20210904
  16. METOCLOPRAMIDE [Concomitant]
     Active Substance: METOCLOPRAMIDE
     Dosage: ONE AT 7 A.M. + 1 AT 11 A.M. + 1 AT 5 P.M
     Dates: start: 20220922
  17. TARGINIQ ER [Concomitant]
     Active Substance: NALOXONE HYDROCHLORIDE\OXYCODONE HYDROCHLORIDE
     Dosage: 2 + 0 + 0 + 3 UNTIL FURTHER NOTICE
     Dates: start: 20220920
  18. FOLSYRA EVOLAN [Concomitant]
     Dosage: UNK
     Dates: start: 20201217

REACTIONS (1)
  - Renal failure [Not Recovered/Not Resolved]

NARRATIVE: CASE EVENT DATE: 20221102
